FAERS Safety Report 5055408-0 (Version None)
Quarter: 2006Q3

REPORT INFORMATION
  Report Type: 
  Country: None (occurrence: None)
  Receive Date: 20060718
  Receipt Date: 20060718
  Transmission Date: 20061208
  Serious: Yes (Hospitalization)
  Sender: FDA-Public Use
  Company Number: None

PATIENT
  Age: 76 Year
  Sex: Male

DRUGS (9)
  1. ROSIGLITAZONE [Suspect]
     Indication: DIABETES MELLITUS NON-INSULIN-DEPENDENT
     Dosage: 2 MG BID
     Dates: start: 20000601
  2. GLIPIZIDE [Suspect]
     Indication: DIABETES MELLITUS NON-INSULIN-DEPENDENT
     Dosage: 5 MG QD
     Dates: start: 20060324
  3. METFORMIN [Suspect]
     Indication: DIABETES MELLITUS NON-INSULIN-DEPENDENT
     Dosage: 1000 MG BID
     Dates: start: 19961101
  4. OMEPRAZOLE [Concomitant]
  5. SERTRALINE [Concomitant]
  6. CALCIUM ACETATE [Concomitant]
  7. REGULAR INSULIN [Concomitant]
  8. MEGESTROL [Concomitant]
  9. AMIODARONE HCL [Concomitant]

REACTIONS (1)
  - HYPOGLYCAEMIA [None]
